FAERS Safety Report 5902843-1 (Version None)
Quarter: 2008Q3

REPORT INFORMATION
  Report Type: 
  Country: None (occurrence: None)
  Receive Date: 20080929
  Receipt Date: 20080929
  Transmission Date: 20090109
  Serious: Yes (Hospitalization)
  Sender: FDA-Public Use
  Company Number: None

PATIENT
  Age: 63 Year
  Sex: Male
  Weight: 70 kg

DRUGS (2)
  1. ERLOTINIB [Suspect]
     Indication: ORAL DISORDER
     Dosage: 75MG DAILY ORAL
     Route: 048
  2. CELECOXIB [Suspect]
     Indication: ORAL DISORDER
     Dosage: 400MG BID ORAL
     Route: 048

REACTIONS (1)
  - CHEST PAIN [None]
